FAERS Safety Report 5150547-8 (Version None)
Quarter: 2006Q4

REPORT INFORMATION
  Report Type: 
  Country: None (occurrence: None)
  Receive Date: 20061110
  Receipt Date: 20061110
  Transmission Date: 20070319
  Serious: No
  Sender: FDA-Public Use
  Company Number: None

PATIENT
  Age: 41 Year
  Sex: Female
  Weight: 72.5755 kg

DRUGS (4)
  1. EXTRA STRENGTH PAIN RELIEVER    500 MG     EQUATE [Suspect]
     Indication: ABDOMINAL PAIN UPPER
     Dosage: 3 CAPLETS  ONCE  PO;  2 CAPLETS ONCE  PO
     Route: 048
     Dates: start: 20061103, end: 20061103
  2. EXTRA STRENGTH PAIN RELIEVER    500 MG     EQUATE [Suspect]
     Indication: HEADACHE
     Dosage: 3 CAPLETS  ONCE  PO;  2 CAPLETS ONCE  PO
     Route: 048
     Dates: start: 20061103, end: 20061103
  3. EXTRA STRENGTH PAIN RELIEVER    500 MG     EQUATE [Suspect]
     Indication: ABDOMINAL PAIN UPPER
     Dosage: 3 CAPLETS  ONCE  PO;  2 CAPLETS ONCE  PO
     Route: 048
     Dates: start: 20061108, end: 20061108
  4. EXTRA STRENGTH PAIN RELIEVER    500 MG     EQUATE [Suspect]
     Indication: HEADACHE
     Dosage: 3 CAPLETS  ONCE  PO;  2 CAPLETS ONCE  PO
     Route: 048
     Dates: start: 20061108, end: 20061108

REACTIONS (1)
  - ABDOMINAL PAIN UPPER [None]
